FAERS Safety Report 10173769 (Version 3)
Quarter: 2014Q2

REPORT INFORMATION
  Report Type: Spontaneous
  Country: DE (occurrence: DE)
  Receive Date: 20140515
  Receipt Date: 20140615
  Transmission Date: 20141212
  Serious: Yes (Death, Other)
  Sender: FDA-Public Use
  Company Number: DE-009507513-1405DEU005368

PATIENT
  Sex: 0

DRUGS (4)
  1. BOCEPREVIR [Suspect]
     Indication: HEPATITIS C
     Route: 048
  2. RIBAVIRIN [Suspect]
     Indication: HEPATITIS C
     Route: 048
  3. PEGINTERFERON ALFA-2B [Suspect]
     Indication: HEPATITIS C
  4. TELAPREVIR [Suspect]
     Indication: HEPATITIS C

REACTIONS (19)
  - Sepsis [Fatal]
  - Anaemia [Unknown]
  - Neutropenia [Recovered/Resolved]
  - Neutropenic sepsis [Unknown]
  - Thrombocytopenia [Unknown]
  - Rash [Unknown]
  - Radial nerve palsy [Recovered/Resolved]
  - Urinary incontinence [Not Recovered/Not Resolved]
  - Balanoposthitis [Recovered/Resolved]
  - Epididymitis [Recovered/Resolved]
  - Abscess sweat gland [Recovered/Resolved]
  - Sepsis [Recovered/Resolved]
  - Hepatic function abnormal [Recovered/Resolved]
  - Diabetes mellitus [Unknown]
  - Ileus [Recovered/Resolved]
  - Angina unstable [Recovered/Resolved]
  - Percutaneous coronary intervention [Unknown]
  - Surgery [Unknown]
  - Transfusion [Unknown]
